FAERS Safety Report 6674163-1 (Version None)
Quarter: 2010Q2

REPORT INFORMATION
  Report Type: 
  Country: None (occurrence: None)
  Receive Date: 20100407
  Receipt Date: 20100322
  Transmission Date: 20101027
  Serious: Yes (Hospitalization)
  Sender: FDA-Public Use
  Company Number: 2010AP000440

PATIENT
  Age: 41 Year
  Sex: Female

DRUGS (4)
  1. RAMIPRIL [Suspect]
     Indication: HYPERTENSION
     Dosage: 2.5 MG; PO
     Route: 048
     Dates: start: 20100208, end: 20100209
  2. FERROUS SULFATE TAB [Suspect]
     Indication: ANAEMIA
     Dosage: 200 MG; PO
     Route: 048
     Dates: start: 20100208, end: 20100209
  3. CALCIUM CARBONATE [Suspect]
  4. BENDROFLUMETHIAZIDE (BENDROFLUMETHIAZIDE) [Concomitant]

REACTIONS (4)
  - FACIAL PAIN [None]
  - LIP SWELLING [None]
  - NASAL CONGESTION [None]
  - SWELLING FACE [None]
